FAERS Safety Report 12942611 (Version 1)
Quarter: 2016Q4

REPORT INFORMATION
  Report Type: Spontaneous
  Country: CN (occurrence: CN)
  Receive Date: 20161115
  Receipt Date: 20161115
  Transmission Date: 20170207
  Serious: Yes (Disabling)
  Sender: FDA-Public Use
  Company Number: CN-BAYER-2016-215709

PATIENT
  Age: 54 Year
  Sex: Female
  Weight: 47.5 kg

DRUGS (1)
  1. AVELOX [Suspect]
     Active Substance: MOXIFLOXACIN HYDROCHLORIDE
     Indication: ANTIBIOTIC THERAPY
     Dosage: 0.4 G, QD
     Route: 041
     Dates: start: 20160904, end: 20160904

REACTIONS (5)
  - Chills [Recovering/Resolving]
  - Wheezing [Recovering/Resolving]
  - Heart rate increased [Recovering/Resolving]
  - Respiratory rate increased [Recovering/Resolving]
  - Blood pressure immeasurable [Recovering/Resolving]

NARRATIVE: CASE EVENT DATE: 20160904
